FAERS Safety Report 8852139 (Version 2)
Quarter: 2012Q4

REPORT INFORMATION
  Report Type: Spontaneous
  Country: JP (occurrence: None)
  Receive Date: 20121017
  Receipt Date: 20121107
  Transmission Date: 20130627
  Serious: Yes (Life-Threatening, Hospitalization, Other)
  Sender: FDA-Public Use
  Company Number: 2012MA012042

PATIENT
  Age: 82 Year
  Sex: Female

DRUGS (1)
  1. KADIAN [Suspect]
     Indication: CANCER PAIN

REACTIONS (2)
  - Altered state of consciousness [None]
  - Respiratory depression [None]
